FAERS Safety Report 4372584-3 (Version None)
Quarter: 2004Q2

REPORT INFORMATION
  Report Type: 
  Country: None (occurrence: None)
  Receive Date: 20040526
  Receipt Date: 20040514
  Transmission Date: 20050107
  Serious: Yes (Other)
  Sender: FDA-Public Use
  Company Number: HQWYE013319MAY04

PATIENT
  Age: 3 Year
  Sex: Female
  Weight: 14.07 kg

DRUGS (1)
  1. CHILDREN'S ADVIL [Suspect]
     Indication: PYREXIA
     Dosage: 1 TEASPOON, ONE TIME, ORAL
     Route: 048
     Dates: start: 20040401, end: 20040401

REACTIONS (1)
  - DRUG HYPERSENSITIVITY [None]
